FAERS Safety Report 25740493 (Version 1)
Quarter: 2025Q3

REPORT INFORMATION
  Report Type: Spontaneous
  Country: US (occurrence: None)
  Receive Date: 20250829
  Receipt Date: 20250829
  Transmission Date: 20251020
  Serious: Yes (Hospitalization)
  Sender: FDA-CTU
  Company Number: None

PATIENT
  Sex: Male

DRUGS (11)
  1. ENBREL [Suspect]
     Active Substance: ETANERCEPT
     Indication: Rheumatoid arthritis
     Route: 058
     Dates: start: 20150818
  2. ALLOPURINOL [Concomitant]
     Active Substance: ALLOPURINOL
  3. ASPIRIN [Concomitant]
     Active Substance: ASPIRIN
  4. B12 [Concomitant]
  5. COLCHICINE [Concomitant]
     Active Substance: COLCHICINE
  6. ENBREL [Concomitant]
     Active Substance: ETANERCEPT
  7. FOLIC ACID [Concomitant]
     Active Substance: FOLIC ACID
  8. FUROSEMIDE [Concomitant]
     Active Substance: FUROSEMIDE
  9. GABAPENTIN [Concomitant]
     Active Substance: GABAPENTIN
  10. JARDIANCE [Concomitant]
     Active Substance: EMPAGLIFLOZIN
  11. LIPITOR [Concomitant]
     Active Substance: ATORVASTATIN CALCIUM

REACTIONS (1)
  - Therapy interrupted [None]
